FAERS Safety Report 21612275 (Version 1)
Quarter: 2022Q4

REPORT INFORMATION
  Report Type: Spontaneous
  Country: DK (occurrence: DK)
  Receive Date: 20221118
  Receipt Date: 20221118
  Transmission Date: 20230113
  Serious: Yes (Hospitalization)
  Sender: FDA-Public Use
  Company Number: None

PATIENT
  Age: 81 Year
  Sex: Male

DRUGS (2)
  1. GABAPENTIN [Suspect]
     Active Substance: GABAPENTIN
     Indication: Pain
     Dosage: STRENGTH: 300MG,UNIT DOSE:300 MG ,THERAPY END DATE: NASK,FREQUENCY TIME:1 DAYS.
     Dates: start: 20171219
  2. MORPHINE SULFATE [Suspect]
     Active Substance: MORPHINE SULFATE
     Indication: Pain
     Dosage: UNIT DOSE:60 MG ,FORM OF ADMIN 1 DAYS ,STRENGTH: 10 MG,THERAPY END DATE:NASK
     Dates: start: 20220909

REACTIONS (2)
  - Constipation [Not Recovered/Not Resolved]
  - Abdominal pain upper [Unknown]

NARRATIVE: CASE EVENT DATE: 20221004
